FAERS Safety Report 22103936 (Version 1)
Quarter: 2023Q1

REPORT INFORMATION
  Report Type: Spontaneous
  Country: US (occurrence: None)
  Receive Date: 20230315
  Receipt Date: 20230315
  Transmission Date: 20230418
  Serious: No
  Sender: FDA-Public Use
  Company Number: None

PATIENT
  Age: 74 Year
  Sex: Female
  Weight: 59.78 kg

DRUGS (7)
  1. VERZENIO [Suspect]
     Active Substance: ABEMACICLIB
     Indication: Breast cancer female
     Dosage: FREQUENCY : TWICE A DAY;?
     Route: 048
     Dates: start: 202210, end: 202303
  2. ASPIRIN [Concomitant]
  3. FUROSEMIDE [Concomitant]
  4. LETROZOLE [Concomitant]
  5. PANOTPRAZOLE [Concomitant]
  6. POTASSIUM CHLORIDE [Concomitant]
  7. VENLAFAXINE [Concomitant]

REACTIONS (2)
  - Therapy cessation [None]
  - Hepatic enzyme increased [None]
